FAERS Safety Report 4679545-5 (Version None)
Quarter: 2005Q2

REPORT INFORMATION
  Report Type: 
  Country: None (occurrence: None)
  Receive Date: 20050602
  Receipt Date: 20050331
  Transmission Date: 20051028
  Serious: Yes (Other)
  Sender: FDA-Public Use
  Company Number: 200512657US

PATIENT
  Sex: Female
  Weight: 63.6 kg

DRUGS (7)
  1. ALLEGRA [Suspect]
     Indication: COUGH
     Route: 048
     Dates: start: 20030516, end: 20050313
  2. ALLEGRA [Suspect]
     Indication: MYCOTIC ALLERGY
     Route: 048
     Dates: start: 20030516, end: 20050313
  3. ALLEGRA [Suspect]
     Indication: POSTNASAL DRIP
     Route: 048
     Dates: start: 20030516, end: 20050313
  4. IBUPROFEN [Concomitant]
     Indication: HEADACHE
  5. VITAMINS [Concomitant]
     Dosage: DOSE: UNK
  6. VITAMINS NOS [Concomitant]
     Indication: RHINITIS
     Dosage: DOSE: UNK
  7. PSEUDOEPHEDRINE WITH GUAFFENESIN [Concomitant]
     Dates: end: 20030501

REACTIONS (12)
  - DEPRESSION [None]
  - DIFFICULTY IN WALKING [None]
  - FATIGUE [None]
  - HYPOAESTHESIA [None]
  - INTERVERTEBRAL DISC PROTRUSION [None]
  - KYPHOSIS [None]
  - MUSCLE SPASMS [None]
  - MUSCLE TIGHTNESS [None]
  - OVARIAN CYST RUPTURED [None]
  - PARAESTHESIA [None]
  - SPONDYLITIS [None]
  - SWELLING FACE [None]
